FAERS Safety Report 7272805-3 (Version None)
Quarter: 2010Q4

REPORT INFORMATION
  Report Type: 
  Country: None (occurrence: None)
  Receive Date: 20101208
  Receipt Date: 20100928
  Transmission Date: 20110411
  Serious: Yes (Other)
  Sender: FDA-Public Use
  Company Number: 1000016518

PATIENT
  Age: 41 Year
  Sex: Male

DRUGS (2)
  1. NAMENDA [Suspect]
     Indication: NYSTAGMUS
     Dosage: 5 MG (5 MG, 1 IN 1 D), ORAL
     Route: 048
     Dates: start: 20100915, end: 20100918
  2. VIAGRA (SILDENAFIL CITRATE) (SILDENAFIL CITRATE) [Concomitant]

REACTIONS (1)
  - CONVULSION [None]
